FAERS Safety Report 6390447-9 (Version None)
Quarter: 2009Q4

REPORT INFORMATION
  Report Type: 
  Country: None (occurrence: None)
  Receive Date: 20091003
  Receipt Date: 20090703
  Transmission Date: 20100525
  Serious: Yes (Disabling)
  Sender: FDA-Public Use
  Company Number: OSCN-NO-0904S-0187

PATIENT
  Age: 73 Year
  Sex: Male

DRUGS (1)
  1. MAGNEVIST [Suspect]
     Indication: METASTASES TO CENTRAL NERVOUS SYSTEM
     Dosage: 30 ML, SINGLE DOSE, I.V
     Route: 042
     Dates: start: 20040920, end: 20040920

REACTIONS (1)
  - NEPHROGENIC SYSTEMIC FIBROSIS [None]
